FAERS Safety Report 5154533-3 (Version None)
Quarter: 2006Q4

REPORT INFORMATION
  Report Type: 
  Country: None (occurrence: None)
  Receive Date: 20061114
  Receipt Date: 20061031
  Transmission Date: 20070319
  Serious: Yes (Hospitalization, Other)
  Sender: FDA-Public Use
  Company Number: 2006112537

PATIENT
  Age: 16 Year
  Sex: Male
  Weight: 55 kg

DRUGS (8)
  1. AZITHROMYCIN [Suspect]
     Indication: STREPTOCOCCAL INFECTION
     Dosage: 500 MG (FREQUENCY: QD), ORAL
     Route: 048
     Dates: start: 20060902, end: 20060904
  2. MEIACT (CEFDITOREN PIVOXIL) [Suspect]
     Indication: PYREXIA
     Dosage: 300 MG (100 MG, FREQUENCY: TIS), ORAL
     Route: 048
     Dates: start: 20060908, end: 20060901
  3. LOXONIN (LOXOPROFEN SODIUM) [Suspect]
     Indication: PYREXIA
     Dosage: 60 MG (60 MG, 1 IN 1 D), ORAL
     Route: 048
     Dates: start: 20060908, end: 20060910
  4. AZEPTIN (AZELASTINE) [Concomitant]
  5. MUCOSTA (REBAMIPIDE) [Concomitant]
  6. MEIACT (CEFDITOREN PIVOXIL) [Concomitant]
  7. CALONAL (PARACETAMOL) [Concomitant]
  8. LOXONIN (LOXOPROFEN SODIUM) [Concomitant]

REACTIONS (13)
  - BLOOD BILIRUBIN INCREASED [None]
  - BLOOD CREATININE INCREASED [None]
  - BLOOD URINE PRESENT [None]
  - C-REACTIVE PROTEIN INCREASED [None]
  - DIARRHOEA [None]
  - FALSE POSITIVE LABORATORY RESULT [None]
  - FEELING HOT [None]
  - LYMPHOCYTE STIMULATION TEST POSITIVE [None]
  - PRURITUS [None]
  - PYREXIA [None]
  - RASH [None]
  - URTICARIA GENERALISED [None]
  - VOMITING [None]
